FAERS Safety Report 8008541-5 (Version None)
Quarter: 2011Q4

REPORT INFORMATION
  Report Type: 
  Country: None (occurrence: None)
  Receive Date: 20111227
  Receipt Date: 20111215
  Transmission Date: 20120403
  Serious: Yes (Hospitalization)
  Sender: FDA-Public Use
  Company Number: FR-ROCHE-1023857

PATIENT
  Sex: Male

DRUGS (22)
  1. ACTEMRA [Suspect]
     Dates: start: 20101223
  2. ACTEMRA [Suspect]
     Dates: start: 20110223
  3. ACTEMRA [Suspect]
     Dates: start: 20110323
  4. ACTEMRA [Suspect]
     Dates: start: 20110615
  5. PREDNISONE TAB [Concomitant]
  6. BONIVA [Concomitant]
  7. IRBESARTAN [Concomitant]
  8. ACTEMRA [Suspect]
     Dates: start: 20110906
  9. SPIRIVA [Concomitant]
  10. ACTEMRA [Suspect]
     Dates: start: 20110518
  11. PREDNISONE TAB [Concomitant]
  12. FLECTOR TOPICAL GEL [Concomitant]
  13. ACTEMRA [Suspect]
     Dates: start: 20110711
  14. PREDNISONE TAB [Concomitant]
  15. PANTOPRAZOLE [Concomitant]
     Dosage: DOSE: 40 UNIT
  16. DELURSAN [Concomitant]
     Dosage: DOSE 250
  17. ACTEMRA [Suspect]
     Dates: start: 20110420
  18. ACTEMRA [Suspect]
     Indication: RHEUMATOID ARTHRITIS
     Dates: start: 20101123
  19. ACTEMRA [Suspect]
     Dates: start: 20111005
  20. ARAVA [Concomitant]
  21. PREDNISONE TAB [Concomitant]
  22. CALCIUM CARBONATE [Concomitant]
     Dosage: DOSE 500 UNIT

REACTIONS (4)
  - PHLEBITIS [None]
  - PNEUMONIA [None]
  - PULMONARY EMBOLISM [None]
  - ACUTE RESPIRATORY FAILURE [None]
